FAERS Safety Report 5127214-X (Version None)
Quarter: 2006Q4

REPORT INFORMATION
  Report Type: 
  Country: None (occurrence: None)
  Receive Date: 20061010
  Receipt Date: 20060925
  Transmission Date: 20070319
  Serious: Yes (Life-Threatening, Hospitalization)
  Sender: FDA-Public Use
  Company Number: REM_00256_2006

PATIENT
  Age: 34 Year
  Sex: Female
  Weight: 57.7 kg

DRUGS (15)
  1. REMODULIN [Suspect]
     Indication: PULMONARY HYPERTENSION
     Dosage: 148 NG/KG/MIN CONTINUOUS; IV
     Route: 042
     Dates: start: 20040513
  2. TRACLEER [Concomitant]
  3. PLAQUENIL [Concomitant]
  4. CELLCEPT [Concomitant]
  5. PROTONIX [Concomitant]
  6. NAPROSYN [Concomitant]
  7. PREDNISONE TAB [Concomitant]
  8. DEPO-PROVERA [Concomitant]
  9. FUROSEMIDE [Concomitant]
  10. KLOR-CON [Concomitant]
  11. ZOLOFT [Concomitant]
  12. CLONAZEPAM [Concomitant]
  13. FOSAMAX [Concomitant]
  14. ALLEGRA [Concomitant]
  15. COUMADIN [Concomitant]

REACTIONS (23)
  - BLOOD URINE PRESENT [None]
  - CATHETER RELATED INFECTION [None]
  - DRUG INTERACTION [None]
  - DRUG TOXICITY [None]
  - DYSPNOEA [None]
  - GENERALISED OEDEMA [None]
  - HAEMOPTYSIS [None]
  - HYPOTENSION [None]
  - INTERNATIONAL NORMALISED RATIO INCREASED [None]
  - JOINT ABSCESS [None]
  - LIVER FUNCTION TEST ABNORMAL [None]
  - LUNG INFILTRATION [None]
  - LUPUS VASCULITIS [None]
  - OXYGEN SATURATION DECREASED [None]
  - PAIN [None]
  - PLEURISY [None]
  - PSEUDOMONAL BACTERAEMIA [None]
  - PULMONARY ALVEOLAR HAEMORRHAGE [None]
  - PULMONARY HYPERTENSION [None]
  - SEPTIC SHOCK [None]
  - THROMBOCYTOPENIA [None]
  - THROMBOSIS [None]
  - VIRAL UPPER RESPIRATORY TRACT INFECTION [None]
